FAERS Safety Report 7397800-5 (Version None)
Quarter: 2011Q2

REPORT INFORMATION
  Report Type: 
  Country: None (occurrence: None)
  Receive Date: 20110401
  Receipt Date: 20110401
  Transmission Date: 20111010
  Serious: Yes (Hospitalization)
  Sender: FDA-Public Use
  Company Number: None

PATIENT
  Age: 91 Year
  Sex: Female
  Weight: 78 kg

DRUGS (14)
  1. WARFARIN SODIUM [Suspect]
     Indication: PULMONARY EMBOLISM
     Dosage: 4 MG DAILY PO
     Route: 048
  2. ALBUTEROL/IPRATROPIUM INHALER [Concomitant]
  3. HYDROCORTISONE CREAM [Concomitant]
  4. FUROSEMIDE [Concomitant]
  5. ALLOPURINOL [Concomitant]
  6. LEVOFLOXACIN [Concomitant]
  7. FLUTICASONE INHALER [Concomitant]
  8. PREDNISONE TAPER [Concomitant]
  9. LISINOPRIL [Concomitant]
  10. GUAIFENESIN [Concomitant]
  11. CALCIUM + VITAMIN D [Concomitant]
  12. LACTOBACILLUS [Concomitant]
  13. METOPROLOL TARTRATE [Concomitant]
  14. ASPIRIN [Concomitant]

REACTIONS (6)
  - INTERNATIONAL NORMALISED RATIO INCREASED [None]
  - HAEMORRHAGIC ANAEMIA [None]
  - COLITIS [None]
  - SUBCUTANEOUS HAEMATOMA [None]
  - ABDOMINAL PAIN [None]
  - HAEMATOMA [None]
